FAERS Safety Report 25723203 (Version 2)
Quarter: 2025Q4

REPORT INFORMATION
  Report Type: Spontaneous
  Country: US (occurrence: US)
  Receive Date: 20250825
  Receipt Date: 20251028
  Transmission Date: 20260117
  Serious: Yes (Other)
  Sender: ROCHE
  Company Number: US-ROCHE-10000367220

PATIENT
  Age: 14 Year
  Sex: Female
  Weight: 73.03 kg

DRUGS (7)
  1. XOLAIR [Suspect]
     Active Substance: OMALIZUMAB
     Indication: Idiopathic urticaria
     Route: 058
     Dates: start: 202504
  2. XOLAIR [Suspect]
     Active Substance: OMALIZUMAB
     Route: 058
     Dates: start: 2019
  3. PEPCID [Concomitant]
     Active Substance: FAMOTIDINE
     Indication: Urticaria
     Dosage: TAKES AT BEDTIME
  4. PEPCID [Concomitant]
     Active Substance: FAMOTIDINE
     Indication: Rhinitis allergic
  5. TAKHZYRO [Concomitant]
     Active Substance: LANADELUMAB-FLYO
     Indication: Hereditary angioedema
     Dosage: DOSAGE: 300MG/2ML
     Dates: start: 202312
  6. ALBUTEROL SULFATE [Concomitant]
     Active Substance: ALBUTEROL SULFATE
     Indication: Asthma
     Dosage: TWO PUFFS EVERY SIX HOURS AS NEEDED
     Route: 055
  7. BERINERT [Concomitant]
     Active Substance: HUMAN C1-ESTERASE INHIBITOR
     Indication: Hereditary angioedema
     Dosage: 500 IU
     Route: 065
     Dates: start: 202312

REACTIONS (3)
  - Device use error [Unknown]
  - Off label use [Unknown]
  - Anaphylactic reaction [Recovered/Resolved]

NARRATIVE: CASE EVENT DATE: 20240209
